FAERS Safety Report 16224908 (Version 1)
Quarter: 2019Q2

REPORT INFORMATION
  Report Type: Spontaneous
  Country: US (occurrence: US)
  Receive Date: 20190422
  Receipt Date: 20190422
  Transmission Date: 20190711
  Serious: No
  Sender: FDA-Public Use
  Company Number: US-TEVA-2019-US-1032739

PATIENT
  Age: 4 Month
  Sex: Male

DRUGS (1)
  1. AZITHROMYCIN FOR ORAL SUSPENSION [Suspect]
     Active Substance: AZITHROMYCIN
     Dosage: DOSE STRENGTH:  200 MG/5 ML
     Dates: start: 201903

REACTIONS (5)
  - Eczema [Unknown]
  - Gastrooesophageal reflux disease [Unknown]
  - Feeling abnormal [Unknown]
  - Mucous stools [Unknown]
  - Crying [Unknown]

NARRATIVE: CASE EVENT DATE: 201903
